FAERS Safety Report 11837498 (Version 2)
Quarter: 2015Q4

REPORT INFORMATION
  Report Type: Report from Study
  Country: NL (occurrence: NL)
  Receive Date: 20151215
  Receipt Date: 20151219
  Transmission Date: 20160305
  Serious: Yes (Death)
  Sender: FDA-Public Use
  Company Number: NL-AMGEN-NLDSL2015132821

PATIENT
  Age: 65 Year
  Sex: Female

DRUGS (1)
  1. NEULASTA [Suspect]
     Active Substance: PEGFILGRASTIM
     Indication: PRODUCT USED FOR UNKNOWN INDICATION
     Dosage: 6 MG,1 IN 2 WK
     Route: 058
     Dates: start: 20140313

REACTIONS (1)
  - Death [Fatal]

NARRATIVE: CASE EVENT DATE: 20141117
